FAERS Safety Report 7083660-9 (Version None)
Quarter: 2010Q4

REPORT INFORMATION
  Report Type: 
  Country: None (occurrence: None)
  Receive Date: 20101104
  Receipt Date: 20101022
  Transmission Date: 20110411
  Serious: Yes (Other)
  Sender: FDA-Public Use
  Company Number: US-ELI_LILLY_AND_COMPANY-US201010006488

PATIENT
  Age: 47 Year
  Sex: Male

DRUGS (8)
  1. ZYPREXA ZYDIS [Suspect]
     Indication: ANXIETY
     Dosage: 5 MG, UNK
     Dates: start: 20100901
  2. ZYPREXA [Suspect]
     Indication: ANXIETY
     Dosage: 5 MG, UNK
  3. ZYPREXA [Suspect]
     Dosage: 7.5 MG, UNK
     Dates: end: 20101015
  4. KLONOPIN [Concomitant]
     Dosage: UNK, AS NEEDED
  5. LORAZEPAM [Concomitant]
  6. BUSPAR [Concomitant]
  7. PAXIL [Concomitant]
  8. VALIUM [Concomitant]
     Dosage: 13 MG, UNK

REACTIONS (10)
  - DRY THROAT [None]
  - DYSKINESIA [None]
  - GRIMACING [None]
  - JAW DISORDER [None]
  - NERVOUSNESS [None]
  - NIGHTMARE [None]
  - OFF LABEL USE [None]
  - PANIC ATTACK [None]
  - SEROTONIN SYNDROME [None]
  - TREMOR [None]
